FAERS Safety Report 23332603 (Version 2)
Quarter: 2024Q1

REPORT INFORMATION
  Report Type: Report from Study
  Country: US (occurrence: None)
  Receive Date: 20231222
  Receipt Date: 20240214
  Transmission Date: 20240409
  Serious: Yes (Hospitalization)
  Sender: FDA-Public Use
  Company Number: 2023A286093

PATIENT
  Age: 23826 Day
  Sex: Female

DRUGS (1)
  1. FASENRA [Suspect]
     Active Substance: BENRALIZUMAB
     Dosage: 30MG/ML EVERY EIGHT WEEKS
     Route: 058

REACTIONS (4)
  - COVID-19 [Unknown]
  - Nasopharyngitis [Unknown]
  - Asthma [Unknown]
  - Thinking abnormal [Unknown]

NARRATIVE: CASE EVENT DATE: 20231210
